FAERS Safety Report 15992151 (Version 2)
Quarter: 2019Q2

REPORT INFORMATION
  Report Type: Report from Study
  Country: JP (occurrence: JP)
  Receive Date: 20190221
  Receipt Date: 20190429
  Transmission Date: 20190711
  Serious: Yes (Other)
  Sender: FDA-Public Use
  Company Number: JP-PFIZER INC-2019075924

PATIENT
  Age: 76 Year
  Sex: Female

DRUGS (5)
  1. APIXABAN [Concomitant]
     Active Substance: APIXABAN
     Indication: DEEP VEIN THROMBOSIS
     Dosage: UNK, DAILY (20-10 MG/DAY)
  2. PACLITAXEL. [Suspect]
     Active Substance: PACLITAXEL
     Indication: OVARIAN CANCER
     Dosage: 175 MG/M2, EVERY 3 WEEKS (DAY 1)
  3. BEVACIZUMAB. [Suspect]
     Active Substance: BEVACIZUMAB
     Indication: OVARIAN CANCER
     Dosage: 15 MG/KG, EVERY 3 WEEKS
     Route: 042
  4. CARBOPLATIN. [Suspect]
     Active Substance: CARBOPLATIN
     Indication: OVARIAN CANCER
     Dosage: AUC 6 MG/ML/MIN, DAY 1, EVERY 3 WEEKS
  5. DAIKENCHUTO [Concomitant]
     Active Substance: HERBALS
     Dosage: UNK

REACTIONS (9)
  - Nausea [Unknown]
  - Neutropenia [Unknown]
  - Peripheral sensory neuropathy [Unknown]
  - Peripheral motor neuropathy [Unknown]
  - Anaemia [Unknown]
  - Alopecia [Unknown]
  - Thrombocytopenia [Unknown]
  - Proteinuria [Unknown]
  - Malaise [Unknown]
